FAERS Safety Report 5818882-5 (Version None)
Quarter: 2008Q3

REPORT INFORMATION
  Report Type: 
  Country: None (occurrence: None)
  Receive Date: 20080723
  Receipt Date: 20080716
  Transmission Date: 20090109
  Serious: Yes (Other)
  Sender: FDA-Public Use
  Company Number: US-AMGEN-KDL295312

PATIENT
  Sex: Female

DRUGS (4)
  1. ENBREL [Suspect]
     Indication: RHEUMATOID ARTHRITIS
     Route: 058
     Dates: start: 20070801
  2. PREDNISONE TAB [Concomitant]
     Route: 048
     Dates: end: 20080401
  3. FOLLISTIM [Concomitant]
     Dates: start: 20080401
  4. PROGESTERONE [Concomitant]

REACTIONS (5)
  - ABORTION SPONTANEOUS [None]
  - ARTHRALGIA [None]
  - JOINT SWELLING [None]
  - OEDEMA PERIPHERAL [None]
  - PAIN IN EXTREMITY [None]
